FAERS Safety Report 25620168 (Version 1)
Quarter: 2025Q3

REPORT INFORMATION
  Report Type: Spontaneous
  Country: US (occurrence: None)
  Receive Date: 20250730
  Receipt Date: 20250730
  Transmission Date: 20251021
  Serious: Yes (Other)
  Sender: SUPERNUS PHARMACEUTICALS, INC.
  Company Number: US-SUPERNUS Pharmaceuticals, Inc.-SUP202507-002712

PATIENT
  Sex: Male

DRUGS (1)
  1. QELBREE [Suspect]
     Active Substance: VILOXAZINE HYDROCHLORIDE
     Indication: Product used for unknown indication

REACTIONS (5)
  - Hallucinations, mixed [Unknown]
  - Migraine [Not Recovered/Not Resolved]
  - Hypertension [Unknown]
  - Vertigo [Unknown]
  - Product dose omission issue [Unknown]
